FAERS Safety Report 7668103-6 (Version None)
Quarter: 2011Q3

REPORT INFORMATION
  Report Type: 
  Country: None (occurrence: None)
  Receive Date: 20110808
  Receipt Date: 20110726
  Transmission Date: 20111222
  Serious: No
  Sender: FDA-Public Use
  Company Number: JP-JNJFOC-20110800040

PATIENT

DRUGS (2)
  1. FENTANYL CITRATE [Suspect]
     Dosage: 1 PATCH OF 12.5 UG/HR AND 1 PATCH OF 25 UG/HR
     Route: 062
     Dates: end: 20110725
  2. FENTANYL CITRATE [Suspect]
     Indication: PRODUCT USED FOR UNKNOWN INDICATION
     Dosage: 2 PATCHES OF 12.5 UG/HR AND 1 PATCH OF 25 UG/HR
     Route: 062
     Dates: start: 20110725

REACTIONS (2)
  - INAPPROPRIATE SCHEDULE OF DRUG ADMINISTRATION [None]
  - APPLICATION SITE PRURITUS [None]
